FAERS Safety Report 8844130 (Version 2)
Quarter: 2012Q4

REPORT INFORMATION
  Report Type: 
  Country: GB (occurrence: GB)
  Receive Date: 20121016
  Receipt Date: 20121203
  Transmission Date: 20130627
  Serious: Yes (Death)
  Sender: FDA-Public Use
  Company Number: GB-ROCHE-GNE324539

PATIENT
  Sex: Male

DRUGS (8)
  1. LUCENTIS [Suspect]
     Indication: AGE-RELATED MACULAR DEGENERATION
     Route: 050
     Dates: start: 20090306
  2. LOSARTAN [Concomitant]
  3. ATENOLOL [Concomitant]
  4. ASPIRIN [Concomitant]
  5. CO-AMILOFRUSE [Concomitant]
  6. ISOSORBIDE MONONITRATE [Concomitant]
  7. LANSOPRAZOLE [Concomitant]
  8. METOCLOPRAMIDE [Concomitant]

REACTIONS (1)
  - Oesophageal carcinoma [Fatal]
